FAERS Safety Report 21525474 (Version 1)
Quarter: 2022Q4

REPORT INFORMATION
  Report Type: Spontaneous
  Country: US (occurrence: None)
  Receive Date: 20221028
  Receipt Date: 20221028
  Transmission Date: 20230113
  Serious: Yes (Hospitalization)
  Sender: FDA-Public Use
  Company Number: None

PATIENT
  Age: 9 Year
  Sex: Male

DRUGS (6)
  1. VIGABATRIN [Suspect]
     Active Substance: VIGABATRIN
     Indication: Epilepsy
     Dosage: 500 MG ORAL??MIX AND GIVE 1500 MG (3 PACKETS) VIA G-TUBE IN MORNING AND 2000 MG (4 PACKETS) VIA G-TU
     Route: 048
     Dates: start: 20180517
  2. ALBUTEROL [Concomitant]
  3. CARNITOR [Concomitant]
     Active Substance: LEVOCARNITINE
  4. DEPAKOTE ER [Concomitant]
     Active Substance: DIVALPROEX SODIUM
  5. FLONASE ALGY SPR [Concomitant]
  6. TOPAMAX [Concomitant]
     Active Substance: TOPIRAMATE

REACTIONS (1)
  - Emergency care [None]

NARRATIVE: CASE EVENT DATE: 20221025
